FAERS Safety Report 5229482-2 (Version None)
Quarter: 2007Q1

REPORT INFORMATION
  Report Type: 
  Country: None (occurrence: None)
  Receive Date: 20070131
  Receipt Date: 20070126
  Transmission Date: 20070707
  Serious: Yes (Other)
  Sender: FDA-Public Use
  Company Number: 152303USA

PATIENT
  Sex: Female

DRUGS (1)
  1. COPAXONE [Suspect]

REACTIONS (3)
  - CARDIAC FAILURE CONGESTIVE [None]
  - HEPATIC NEOPLASM MALIGNANT [None]
  - LUNG NEOPLASM MALIGNANT [None]
